FAERS Safety Report 10110967 (Version 2)
Quarter: 2015Q1

REPORT INFORMATION
  Report Type: Other
  Country: US (occurrence: US)
  Receive Date: 20140425
  Receipt Date: 20150102
  Transmission Date: 20150720
  Serious: Yes (Hospitalization, Other)
  Sender: FDA-Public Use
  Company Number: US-GSKPPD-2014GSK010135

PATIENT
  Sex: Male

DRUGS (11)
  1. AVANDIA [Suspect]
     Active Substance: ROSIGLITAZONE MALEATE
     Indication: DIABETES MELLITUS
     Dosage: DATES OF AVANDIA USE COULD NOT BE CONFIRMED IN RECORDS REVIEWED.
     Route: 048
  2. TENORMIN [Concomitant]
     Active Substance: ATENOLOL
     Dates: start: 200801
  3. ASPIRIN. [Concomitant]
     Active Substance: ASPIRIN
     Route: 048
     Dates: start: 200802
  4. NITROGLYCERIN. [Concomitant]
     Active Substance: NITROGLYCERIN
     Dosage: PRN FOR CHEST PAIN
     Route: 060
     Dates: start: 200802
  5. CARVEDILOL. [Concomitant]
     Active Substance: CARVEDILOL
     Route: 048
     Dates: start: 200802
  6. LOTENSIN [Concomitant]
     Active Substance: BENAZEPRIL HYDROCHLORIDE
     Route: 048
     Dates: start: 200802
  7. AMLODIPINE [Concomitant]
     Active Substance: AMLODIPINE BESYLATE
     Route: 048
     Dates: start: 200802
  8. CARDIZEM CD [Concomitant]
     Active Substance: DILTIAZEM HYDROCHLORIDE
     Route: 048
     Dates: start: 200801
  9. ECOTRIN [Concomitant]
     Active Substance: ASPIRIN
     Dates: start: 200801
  10. PLAVIX [Concomitant]
     Active Substance: CLOPIDOGREL BISULFATE
     Route: 048
     Dates: start: 200802
  11. LOTENSIN [Concomitant]
     Active Substance: BENAZEPRIL HYDROCHLORIDE
     Dates: start: 200801

REACTIONS (2)
  - Cerebrovascular accident [Recovered/Resolved]
  - Acute myocardial infarction [Recovered/Resolved]

NARRATIVE: CASE EVENT DATE: 20080105
